FAERS Safety Report 7446174-X (Version None)
Quarter: 2011Q2

REPORT INFORMATION
  Report Type: 
  Country: None (occurrence: None)
  Receive Date: 20110429
  Receipt Date: 20110420
  Transmission Date: 20111010
  Serious: Yes (Other)
  Sender: FDA-Public Use
  Company Number: IT-US-EMD SERONO, INC.-7055166

PATIENT
  Sex: Male

DRUGS (2)
  1. REBIF [Suspect]
     Indication: PRODUCT USED FOR UNKNOWN INDICATION
     Route: 058
     Dates: start: 20100903, end: 20110322
  2. TACHIPIRINA [Concomitant]
     Dates: start: 20100903, end: 20110322

REACTIONS (2)
  - HYPERTRANSAMINASAEMIA [None]
  - LIVER DISORDER [None]
